FAERS Safety Report 24323427 (Version 1)
Quarter: 2024Q3

REPORT INFORMATION
  Report Type: Spontaneous
  Country: US (occurrence: US)
  Receive Date: 20240916
  Receipt Date: 20240916
  Transmission Date: 20241017
  Serious: No
  Sender: SANOFI AVENTIS
  Company Number: US-SA-2024SA263678

PATIENT
  Age: 65 Year
  Sex: Female

DRUGS (15)
  1. DUPIXENT [Suspect]
     Active Substance: DUPILUMAB
     Indication: Asthma
     Dosage: 300 MG, QOW
     Route: 058
     Dates: start: 20240726
  2. CEPHALEXIN [Concomitant]
     Active Substance: CEPHALEXIN
  3. EMGALITY [Concomitant]
     Active Substance: GALCANEZUMAB-GNLM
  4. HYDROCHLOROTHIAZIDE [Concomitant]
     Active Substance: HYDROCHLOROTHIAZIDE
  5. HYDROCODONE [Concomitant]
     Active Substance: HYDROCODONE
  6. LEVOCETIRIZINE [Concomitant]
     Active Substance: LEVOCETIRIZINE
  7. MAGNESIUM [Concomitant]
     Active Substance: MAGNESIUM
  8. METAXALONE [Concomitant]
     Active Substance: METAXALONE
  9. MONTELUKAST [Concomitant]
     Active Substance: MONTELUKAST SODIUM
  10. VITAMINS [Concomitant]
     Active Substance: VITAMINS
  11. OMEPRAZOLE [Concomitant]
     Active Substance: OMEPRAZOLE
  12. RIZATRIPTAN [Concomitant]
     Active Substance: RIZATRIPTAN
  13. TYLENOL [Concomitant]
     Active Substance: ACETAMINOPHEN
  14. VITAMIN B [Concomitant]
     Active Substance: VITAMIN B
  15. VITAMIN D [Concomitant]
     Active Substance: VITAMIN D NOS

REACTIONS (1)
  - Injection site erythema [Not Recovered/Not Resolved]

NARRATIVE: CASE EVENT DATE: 20240101
